FAERS Safety Report 18783075 (Version 2)
Quarter: 2021Q1

REPORT INFORMATION
  Report Type: Spontaneous
  Country: US (occurrence: US)
  Receive Date: 20210125
  Receipt Date: 20210125
  Transmission Date: 20210419
  Serious: No
  Sender: FDA-Public Use
  Company Number: US-JNJFOC-20200309807

PATIENT

DRUGS (1)
  1. IMODIUM A?D [Suspect]
     Active Substance: LOPERAMIDE HYDROCHLORIDE
     Indication: GASTRIC OPERATION
     Route: 048

REACTIONS (2)
  - Product use in unapproved indication [Unknown]
  - Product packaging issue [Unknown]
